FAERS Safety Report 14119871 (Version 4)
Quarter: 2018Q1

REPORT INFORMATION
  Report Type: Spontaneous
  Country: JP (occurrence: JP)
  Receive Date: 20171024
  Receipt Date: 20180314
  Transmission Date: 20180508
  Serious: Yes (Hospitalization, Other)
  Sender: FDA-Public Use
  Company Number: JP-ASTELLAS-2017JP019938AA

PATIENT
  Age: 68 Year
  Sex: Male

DRUGS (22)
  1. TAKEPRON [Concomitant]
     Active Substance: LANSOPRAZOLE
     Route: 050
     Dates: start: 20171024, end: 20171130
  2. NAUZELIN [Concomitant]
     Active Substance: DOMPERIDONE
     Route: 050
     Dates: start: 20171024, end: 20171217
  3. TAKEPRON [Concomitant]
     Active Substance: LANSOPRAZOLE
     Indication: GASTROOESOPHAGEAL REFLUX DISEASE
     Route: 048
  4. URIEF [Concomitant]
     Active Substance: SILODOSIN
     Indication: BENIGN PROSTATIC HYPERPLASIA
     Route: 048
  5. MUCOSTA [Concomitant]
     Active Substance: REBAMIPIDE
     Indication: CHRONIC GASTRITIS
     Route: 048
  6. BERAPROST NA [Concomitant]
     Active Substance: BERAPROST SODIUM
     Indication: PERIPHERAL ARTERIAL OCCLUSIVE DISEASE
     Route: 048
  7. AMLODINE                           /00972401/ [Concomitant]
     Route: 050
     Dates: start: 20171024, end: 20171217
  8. MADOPAR [Concomitant]
     Active Substance: BENSERAZIDE HYDROCHLORIDE\LEVODOPA
     Indication: PARKINSONISM
     Dosage: 1 TABLET, THRICE DAILY
     Route: 048
  9. MUCOSTA [Concomitant]
     Active Substance: REBAMIPIDE
     Route: 050
     Dates: start: 20171024, end: 20171130
  10. BERAPROST NA [Concomitant]
     Active Substance: BERAPROST SODIUM
     Route: 050
     Dates: start: 20171024
  11. URIEF [Concomitant]
     Active Substance: SILODOSIN
     Route: 050
     Dates: start: 20171024
  12. TRAMCET [Concomitant]
     Active Substance: ACETAMINOPHEN\TRAMADOL
     Indication: RHEUMATOID ARTHRITIS
     Dosage: 1 TABLET, THRICE DAILY
     Route: 050
     Dates: start: 20171024, end: 20171130
  13. ROZEREM [Concomitant]
     Active Substance: RAMELTEON
     Route: 050
     Dates: start: 20171024
  14. TRAMCET [Concomitant]
     Active Substance: ACETAMINOPHEN\TRAMADOL
     Indication: PAIN
     Dosage: 1 TABLET, THRICE DAILY
     Route: 048
  15. PROGRAF [Suspect]
     Active Substance: TACROLIMUS\TACROLIMUS ANHYDROUS
     Indication: RHEUMATOID ARTHRITIS
     Route: 048
  16. PROGRAF [Suspect]
     Active Substance: TACROLIMUS\TACROLIMUS ANHYDROUS
     Route: 050
     Dates: start: 20171024
  17. MADOPAR [Concomitant]
     Active Substance: BENSERAZIDE HYDROCHLORIDE\LEVODOPA
     Indication: PROGRESSIVE SUPRANUCLEAR PALSY
     Dosage: 1 TABLET, THRICE DAILY
     Route: 050
     Dates: start: 20171024
  18. MUCOSOLVAN [Concomitant]
     Active Substance: AMBROXOL HYDROCHLORIDE
     Indication: BRONCHITIS CHRONIC
     Route: 048
  19. MUCOSOLVAN [Concomitant]
     Active Substance: AMBROXOL HYDROCHLORIDE
     Route: 050
     Dates: start: 20171024, end: 20171130
  20. AMLODINE                           /00972401/ [Concomitant]
     Indication: HYPERTENSION
     Route: 048
  21. ROZEREM [Concomitant]
     Active Substance: RAMELTEON
     Indication: INSOMNIA
     Route: 048
  22. NAUZELIN [Concomitant]
     Active Substance: DOMPERIDONE
     Indication: NAUSEA
     Route: 048

REACTIONS (2)
  - Off label use [Unknown]
  - Gastric fistula [Unknown]

NARRATIVE: CASE EVENT DATE: 20171023
